FAERS Safety Report 9652164 (Version 1)
Quarter: 2013Q4

REPORT INFORMATION
  Report Type: Spontaneous
  Country: IN (occurrence: None)
  Receive Date: 20131025
  Receipt Date: 20131025
  Transmission Date: 20140711
  Serious: Yes (Other)
  Sender: FDA-Public Use
  Company Number: 7243843

PATIENT
  Age: 45 Year
  Sex: Male

DRUGS (7)
  1. LEVOTHYROXINE [Suspect]
     Indication: HASHIMOTO^S ENCEPHALOPATHY
  2. PREDNISOLONE (PREDNISOLONE) [Suspect]
     Indication: HASHIMOTO^S ENCEPHALOPATHY
     Route: 048
  3. METHYLPREDNISOLON [Suspect]
     Indication: HASHIMOTO^S ENCEPHALOPATHY
     Route: 042
  4. AZATHIOPRINE (AZATHIOPRINE) [Concomitant]
  5. TELMISARTAN [Concomitant]
  6. ATORVASTATIN [Concomitant]
  7. CALCIUM LACTOGLUCONATE [Concomitant]

REACTIONS (1)
  - Haematemesis [None]
